FAERS Safety Report 15150594 (Version 4)
Quarter: 2019Q1

REPORT INFORMATION
  Report Type: Spontaneous
  Country: US (occurrence: US)
  Receive Date: 20180716
  Receipt Date: 20190226
  Transmission Date: 20190417
  Serious: No
  Sender: FDA-Public Use
  Company Number: PHEH2018US028059

PATIENT
  Age: 30 Year
  Sex: Male

DRUGS (1)
  1. AMOXICILLIN AND CLAVULANATE POTASSIUM TABLETS USP [Suspect]
     Active Substance: AMOXICILLIN\CLAVULANATE POTASSIUM
     Indication: ASTHMA
     Dosage: 1 DF, BID
     Route: 048
     Dates: start: 20180704

REACTIONS (5)
  - Cough [Unknown]
  - Product use in unapproved indication [Unknown]
  - Foreign body in gastrointestinal tract [Unknown]
  - Product contamination physical [Unknown]
  - Vomiting [Unknown]
